FAERS Safety Report 9587479 (Version 2)
Quarter: 2013Q4

REPORT INFORMATION
  Report Type: Spontaneous
  Country: US (occurrence: US)
  Receive Date: 20131003
  Receipt Date: 20131031
  Transmission Date: 20140711
  Serious: Yes (Other)
  Sender: FDA-Public Use
  Company Number: US-TEVA-435577USA

PATIENT
  Age: 29 Year
  Sex: Female
  Weight: 90.8 kg

DRUGS (1)
  1. PARAGARD 380A [Suspect]
     Indication: CONTRACEPTION
     Route: 015
     Dates: start: 20111222, end: 20130201

REACTIONS (7)
  - Diabetes mellitus [Unknown]
  - Pregnancy with contraceptive device [Recovered/Resolved]
  - Drug ineffective [Unknown]
  - Live birth [Recovered/Resolved]
  - Pre-eclampsia [Unknown]
  - Menorrhagia [Recovered/Resolved]
  - Menorrhagia [Recovered/Resolved]
